FAERS Safety Report 16073314 (Version 1)
Quarter: 2019Q1

REPORT INFORMATION
  Report Type: Spontaneous
  Country: FR (occurrence: FR)
  Receive Date: 20190314
  Receipt Date: 20190314
  Transmission Date: 20190418
  Serious: Yes (Hospitalization, Other)
  Sender: FDA-Public Use
  Company Number: FR-BAUSCH-BL-2019-007625

PATIENT
  Age: 66 Year
  Sex: Female

DRUGS (3)
  1. NIVOLUMAB [Suspect]
     Active Substance: NIVOLUMAB
     Indication: LUNG NEOPLASM MALIGNANT
     Dosage: 215 MG, Q2WK
     Route: 042
     Dates: start: 20170608
  2. SOLUPRED [Concomitant]
     Indication: PRODUCT USED FOR UNKNOWN INDICATION
     Dosage: QD (UNITS EQUAL TO MG)
     Route: 065
  3. FENOFIBRATE. [Suspect]
     Active Substance: FENOFIBRATE
     Indication: DYSLIPIDAEMIA
     Route: 065

REACTIONS (4)
  - Arthritis [Not Recovered/Not Resolved]
  - Arthropathy [Recovering/Resolving]
  - Cholestasis [Recovered/Resolved]
  - Diarrhoea [Recovered/Resolved]

NARRATIVE: CASE EVENT DATE: 20170720
